FAERS Safety Report 14708139 (Version 1)
Quarter: 2018Q2

REPORT INFORMATION
  Report Type: Spontaneous
  Country: CA (occurrence: CA)
  Receive Date: 20180403
  Receipt Date: 20180403
  Transmission Date: 20180711
  Serious: Yes (Other)
  Sender: FDA-Public Use
  Company Number: PHHY2018CA050337

PATIENT
  Age: 7 Year
  Sex: Female

DRUGS (3)
  1. ZOFRAN ODT [Suspect]
     Active Substance: ONDANSETRON HYDROCHLORIDE
     Indication: GASTROENTERITIS
     Dosage: 4 MG, ONCE/SINGLE
     Route: 048
     Dates: start: 20180320, end: 20180320
  2. ZOFRAN ODT [Suspect]
     Active Substance: ONDANSETRON HYDROCHLORIDE
     Dosage: 4 MG, ONCE/SINGLE
     Route: 048
     Dates: start: 20180320, end: 20180320
  3. ADVIL [Concomitant]
     Active Substance: IBUPROFEN
     Indication: PRODUCT USED FOR UNKNOWN INDICATION
     Dosage: UNK
     Route: 065

REACTIONS (13)
  - Carbon dioxide decreased [Unknown]
  - White blood cell count increased [Unknown]
  - Blood lactic acid increased [Unknown]
  - Neutrophil count increased [Unknown]
  - Tachycardia [Recovered/Resolved]
  - Urticaria [Recovered/Resolved]
  - Hypotension [Recovered/Resolved]
  - Red blood cell count increased [Unknown]
  - Haemoglobin increased [Unknown]
  - Blood bilirubin increased [Unknown]
  - Chills [Recovered/Resolved]
  - Monocyte count increased [Unknown]
  - Pruritus [Recovered/Resolved]

NARRATIVE: CASE EVENT DATE: 20180320
